FAERS Safety Report 18603817 (Version 1)
Quarter: 2020Q4

REPORT INFORMATION
  Report Type: Spontaneous
  Country: US (occurrence: US)
  Receive Date: 20201210
  Receipt Date: 20201210
  Transmission Date: 20210114
  Serious: Yes (Life-Threatening, Hospitalization)
  Sender: FDA-Public Use
  Company Number: None

PATIENT
  Age: 47 Year
  Sex: Male
  Weight: 164.25 kg

DRUGS (11)
  1. PRADAXA [Suspect]
     Active Substance: DABIGATRAN ETEXILATE MESYLATE
     Indication: FACTOR V DEFICIENCY
     Route: 048
     Dates: start: 20200210, end: 20200907
  2. ENOXAPARIN [Concomitant]
     Active Substance: ENOXAPARIN
  3. ROPINIROLE HCL [Concomitant]
     Active Substance: ROPINIROLE HYDROCHLORIDE
  4. SIMVASTATIN. [Concomitant]
     Active Substance: SIMVASTATIN
  5. AMLODIPINE [Concomitant]
     Active Substance: AMLODIPINE BESYLATE
  6. OMEPRAZOLE DR [Concomitant]
     Active Substance: OMEPRAZOLE
  7. ESCITALOPRAM [Concomitant]
     Active Substance: ESCITALOPRAM OXALATE
  8. DOXYCYC MONO [Concomitant]
     Active Substance: DOXYCYCLINE
  9. CYCLOBENZAPR [Concomitant]
     Active Substance: CYCLOBENZAPRINE
  10. ATENOLOL. [Concomitant]
     Active Substance: ATENOLOL
  11. LORATADINE. [Concomitant]
     Active Substance: LORATADINE

REACTIONS (6)
  - Gait disturbance [None]
  - Pulmonary embolism [None]
  - Thrombosis [None]
  - Deep vein thrombosis [None]
  - Treatment failure [None]
  - Fatigue [None]

NARRATIVE: CASE EVENT DATE: 20200910
